FAERS Safety Report 13537206 (Version 7)
Quarter: 2017Q3

REPORT INFORMATION
  Report Type: Spontaneous
  Country: CN (occurrence: CN)
  Receive Date: 20170511
  Receipt Date: 20170714
  Transmission Date: 20171127
  Serious: Yes (Hospitalization, Other)
  Sender: FDA-Public Use
  Company Number: CN-GLAXOSMITHKLINE-CN2017GSK067695

PATIENT
  Age: 50 Year
  Sex: Male

DRUGS (8)
  1. HEPTODIN [Suspect]
     Active Substance: LAMIVUDINE
     Indication: HEPATITIS B
     Dosage: 1 DF, QD
     Route: 048
  2. COMPOUND GLYCYRRHIZIN TABLET (GLYCINE\GLYCYRRHIZIN\METHIONINE) [Suspect]
     Active Substance: GLYCINE\GLYCYRRHIZIN\METHIONINE
     Indication: PRODUCT USED FOR UNKNOWN INDICATION
     Dosage: UNK
     Route: 048
  3. SILIBININ CAPSULE (SILYBUM MARIANUM) [Suspect]
     Active Substance: MILK THISTLE
     Indication: PROPHYLAXIS
     Dosage: UNK
     Route: 048
  4. HEPTODIN [Suspect]
     Active Substance: LAMIVUDINE
     Dosage: UNK
     Route: 048
  5. HEPSERA [Suspect]
     Active Substance: ADEFOVIR DIPIVOXIL
     Indication: HEPATITIS B
     Route: 048
  6. ADEFOVIR DIPIVOXIL. [Suspect]
     Active Substance: ADEFOVIR DIPIVOXIL
     Indication: HEPATITIS B
     Dosage: UNK
  7. HEPTODIN [Suspect]
     Active Substance: LAMIVUDINE
     Dosage: EXTERNAL PACKAGE BATCH NO.
     Route: 048
  8. HEPTODIN [Suspect]
     Active Substance: LAMIVUDINE
     Dosage: INTERNAL PACKAGE BATCH NO
     Route: 048

REACTIONS (7)
  - Epigastric discomfort [Recovered/Resolved]
  - Product counterfeit [Unknown]
  - Gastric ulcer [Unknown]
  - Suspected counterfeit product [Unknown]
  - Product packaging issue [None]
  - Headache [Recovered/Resolved]
  - Gastric haemorrhage [Recovered/Resolved]

NARRATIVE: CASE EVENT DATE: 201612
